FAERS Safety Report 26085952 (Version 2)
Quarter: 2025Q4

REPORT INFORMATION
  Report Type: Spontaneous
  Country: US (occurrence: US)
  Receive Date: 20251125
  Receipt Date: 20251125
  Transmission Date: 20260117
  Serious: Yes (Other)
  Sender: GILEAD
  Company Number: US-GILEAD-2025-0732805

PATIENT
  Age: 43 Year
  Sex: Male
  Weight: 101.5 kg

DRUGS (2)
  1. LENACAPAVIR [Suspect]
     Active Substance: LENACAPAVIR
     Indication: HIV infection
     Dosage: 927 MG
     Route: 058
     Dates: start: 20240117
  2. CABENUVA [Suspect]
     Active Substance: CABOTEGRAVIR\RILPIVIRINE
     Indication: HIV infection
     Dosage: 600-900 MG
     Route: 030
     Dates: start: 20240117

REACTIONS (3)
  - HIV viraemia [Recovered/Resolved]
  - Genotype drug resistance test positive [Unknown]
  - Viral load abnormal [Recovered/Resolved]

NARRATIVE: CASE EVENT DATE: 20251009
